FAERS Safety Report 5078709-9 (Version None)
Quarter: 2006Q3

REPORT INFORMATION
  Report Type: 
  Country: None (occurrence: None)
  Receive Date: 20060809
  Receipt Date: 20060809
  Transmission Date: 20061208
  Serious: No
  Sender: FDA-Public Use
  Company Number: None

PATIENT

DRUGS (1)
  1. OXYBUTYNIN 5 MG PLIVA [Suspect]
     Indication: HYPERTONIC BLADDER
     Dosage: 5 MG TWICE A DAY
     Dates: start: 20060726, end: 20060727

REACTIONS (2)
  - DRUG INEFFECTIVE [None]
  - PHARMACEUTICAL PRODUCT COMPLAINT [None]
